FAERS Safety Report 8333837 (Version 2)
Quarter: 2013Q2

REPORT INFORMATION
  Report Type: Spontaneous
  Country: US (occurrence: None)
  Receive Date: 20111130
  Receipt Date: 20120731
  Transmission Date: 20140414
  Serious: Yes (Other)
  Sender: FDA-Public Use
  Company Number: US201107004545

PATIENT
  Age: 51 Year
  Sex: Female

DRUGS (7)
  1. BYETTA [Suspect]
     Dosage: UNK
     Route: 058
     Dates: start: 2007, end: 2009
  2. AMLODIPINE (AMLODIPINE) [Concomitant]
  3. LASIX  /00032601/ [Concomitant]
  4. BENAZEPRIL (BENAZEPRIL) [Concomitant]
  5. SIMVASTATIN (SIMVASTATIN) [Concomitant]
  6. DIOVAN (VALSARTAN) [Concomitant]
  7. INSULIN (INSULIN) [Concomitant]

REACTIONS (2)
  - RENAL FAILURE [None]
  - Renal failure chronic [None]
